FAERS Safety Report 5164450-0 (Version None)
Quarter: 2006Q4

REPORT INFORMATION
  Report Type: 
  Country: None (occurrence: None)
  Receive Date: 20061205
  Receipt Date: 20050328
  Transmission Date: 20070319
  Serious: Yes (Hospitalization)
  Sender: FDA-Public Use
  Company Number: JP-ROCHE-400532

PATIENT
  Age: 43 Year
  Sex: Female

DRUGS (5)
  1. TAMIFLU [Suspect]
     Indication: INFLUENZA
     Route: 048
     Dates: start: 20050312, end: 20050316
  2. FLOMOX [Suspect]
     Route: 048
     Dates: start: 20050311, end: 20050313
  3. BAYNAS [Suspect]
     Indication: RHINITIS ALLERGIC
     Route: 048
     Dates: start: 20050310, end: 20050311
  4. CELTECT [Suspect]
     Indication: RHINITIS ALLERGIC
     Route: 048
     Dates: start: 20050309, end: 20050310
  5. ZYRTEC [Suspect]
     Indication: RHINITIS ALLERGIC
     Route: 048
     Dates: start: 20050226, end: 20050306

REACTIONS (3)
  - HEPATIC FUNCTION ABNORMAL [None]
  - JAUNDICE [None]
  - LIVER DISORDER [None]
